FAERS Safety Report 7764162-0 (Version None)
Quarter: 2011Q3

REPORT INFORMATION
  Report Type: 
  Country: None (occurrence: None)
  Receive Date: 20110916
  Receipt Date: 20110902
  Transmission Date: 20111222
  Serious: Yes (Other)
  Sender: FDA-Public Use
  Company Number: 1000023754

PATIENT
  Age: 84 Year
  Sex: Male
  Weight: 71 kg

DRUGS (2)
  1. CARBIDOPA + LEVODOPA [Concomitant]
  2. MEMANTINE HYDROCHLORIDE [Suspect]
     Dates: start: 20110712, end: 20110727

REACTIONS (2)
  - FALL [None]
  - MUSCULOSKELETAL STIFFNESS [None]
